FAERS Safety Report 6967872-8 (Version None)
Quarter: 2010Q3

REPORT INFORMATION
  Report Type: 
  Country: None (occurrence: None)
  Receive Date: 20100907
  Receipt Date: 20100426
  Transmission Date: 20110219
  Serious: No
  Sender: FDA-Public Use
  Company Number: A0856737A

PATIENT
  Age: 76 Year
  Sex: Female

DRUGS (5)
  1. REQUIP [Suspect]
     Indication: RESTLESS LEGS SYNDROME
     Dosage: 2MG FOUR TIMES PER DAY
     Route: 048
     Dates: start: 20070101
  2. REQUIP XL [Suspect]
     Indication: RESTLESS LEGS SYNDROME
     Dosage: 2MG PER DAY
     Route: 048
  3. OMEPRAZOLE [Concomitant]
  4. CELEBREX [Concomitant]
  5. NUCYNTA [Concomitant]

REACTIONS (2)
  - DRUG INEFFECTIVE [None]
  - VULVOVAGINAL PRURITUS [None]
